APPROVED DRUG PRODUCT: ZAGAM
Active Ingredient: SPARFLOXACIN
Strength: 200MG
Dosage Form/Route: TABLET;ORAL
Application: N020677 | Product #001
Applicant: MYLAN PHARMACEUTICALS INC
Approved: Dec 19, 1996 | RLD: No | RS: No | Type: DISCN